APPROVED DRUG PRODUCT: NEPHRAMINE 5.4%
Active Ingredient: AMINO ACIDS
Strength: 5.4% (5.4GM/100ML)
Dosage Form/Route: INJECTABLE;INJECTION
Application: N017766 | Product #001
Applicant: B BRAUN MEDICAL INC
Approved: Approved Prior to Jan 1, 1982 | RLD: No | RS: No | Type: DISCN